FAERS Safety Report 21926978 (Version 1)
Quarter: 2023Q1

REPORT INFORMATION
  Report Type: Spontaneous
  Country: US (occurrence: None)
  Receive Date: 20230128
  Receipt Date: 20230128
  Transmission Date: 20230417
  Serious: Yes (Disabling)
  Sender: FDA-Public Use
  Company Number: None

PATIENT
  Age: 33 Year
  Sex: Female
  Weight: 63 kg

DRUGS (6)
  1. METFORMIN HYDROCHLORIDE [Suspect]
     Active Substance: METFORMIN HYDROCHLORIDE
     Indication: Polycystic ovaries
     Dosage: FREQUENCY : DAILY;?
     Route: 048
     Dates: start: 20221215, end: 20230124
  2. METFORMIN HYDROCHLORIDE [Suspect]
     Active Substance: METFORMIN HYDROCHLORIDE
     Indication: Insulin resistance
  3. VALTREX [Concomitant]
     Active Substance: VALACYCLOVIR HYDROCHLORIDE
  4. VITAMINS [Concomitant]
     Active Substance: VITAMINS
  5. MOTRIN [Concomitant]
     Active Substance: IBUPROFEN
  6. CANNABIDIOL [Concomitant]
     Active Substance: CANNABIDIOL

REACTIONS (3)
  - Vulvovaginal discomfort [None]
  - Rosacea [None]
  - Rash [None]

NARRATIVE: CASE EVENT DATE: 20221215
